FAERS Safety Report 4785562-7 (Version None)
Quarter: 2005Q4

REPORT INFORMATION
  Report Type: 
  Country: None (occurrence: None)
  Receive Date: 20051003
  Receipt Date: 20041110
  Transmission Date: 20060501
  Serious: Yes (Other)
  Sender: FDA-Public Use
  Company Number: FR-GLAXOSMITHKLINE-B0357218A

PATIENT
  Age: 37 Year
  Sex: Female
  Weight: 54 kg

DRUGS (2)
  1. DEROXAT [Suspect]
     Indication: OBSESSIVE-COMPULSIVE DISORDER
     Route: 048
     Dates: start: 20040126
  2. LYSANXIA [Suspect]
     Dosage: 10MG PER DAY
     Route: 048

REACTIONS (1)
  - ABORTION SPONTANEOUS [None]
